FAERS Safety Report 14095867 (Version 3)
Quarter: 2018Q2

REPORT INFORMATION
  Report Type: Report from Study
  Country: DE (occurrence: DE)
  Receive Date: 20171017
  Receipt Date: 20180419
  Transmission Date: 20180711
  Serious: Yes (Death)
  Sender: FDA-Public Use
  Company Number: DE-ROCHE-2009242

PATIENT
  Age: 81 Year
  Sex: Female
  Weight: 62 kg

DRUGS (5)
  1. CAPECITABINE. [Suspect]
     Active Substance: CAPECITABINE
     Indication: BREAST CANCER
     Dosage: 09/FEB/2012 AND 15/MAR/2012
     Route: 065
     Dates: start: 20120119
  2. CAPECITABINE. [Suspect]
     Active Substance: CAPECITABINE
     Route: 048
     Dates: start: 20120315
  3. BEVACIZUMAB. [Suspect]
     Active Substance: BEVACIZUMAB
     Indication: BREAST CANCER
     Route: 042
     Dates: start: 20120119, end: 20120119
  4. BEVACIZUMAB. [Suspect]
     Active Substance: BEVACIZUMAB
     Dosage: LAST DOSE PRIOR TO SAE ON 15/MAR/2012
     Route: 042
     Dates: start: 20120315
  5. FELODIPIN [Concomitant]
     Active Substance: FELODIPINE
     Route: 065
     Dates: start: 2000

REACTIONS (1)
  - Death [Fatal]
